FAERS Safety Report 23762782 (Version 1)
Quarter: 2024Q2

REPORT INFORMATION
  Report Type: Spontaneous
  Country: JP (occurrence: None)
  Receive Date: 20240419
  Receipt Date: 20240419
  Transmission Date: 20240716
  Serious: Yes (Other)
  Sender: FDA-Public Use
  Company Number: JP-Unichem Pharmaceuticals (USA) Inc-UCM202404-000427

PATIENT
  Age: 60 Year
  Sex: Male

DRUGS (1)
  1. DIVALPROEX SODIUM [Suspect]
     Active Substance: DIVALPROEX SODIUM
     Indication: Epilepsy
     Dosage: UNKNOWN
     Route: 048

REACTIONS (5)
  - Atelectasis [Recovered/Resolved]
  - Respiratory failure [Recovered/Resolved]
  - Sputum increased [Recovered/Resolved]
  - Gene mutation [Unknown]
  - C-reactive protein increased [Unknown]
